FAERS Safety Report 9813078 (Version 5)
Quarter: 2014Q2

REPORT INFORMATION
  Report Type: Spontaneous
  Country: US (occurrence: US)
  Receive Date: 20140113
  Receipt Date: 20140513
  Transmission Date: 20141212
  Serious: Yes (Death, Other)
  Sender: FDA-Public Use
  Company Number: US-009507513-1401USA003197

PATIENT
  Age: 84 Year
  Sex: Male

DRUGS (1)
  1. EMEND [Suspect]
     Dosage: UNK
     Route: 048

REACTIONS (1)
  - Colon cancer metastatic [Fatal]
